FAERS Safety Report 22041801 (Version 3)
Quarter: 2023Q1

REPORT INFORMATION
  Report Type: Spontaneous
  Country: US (occurrence: US)
  Receive Date: 20230227
  Receipt Date: 20230321
  Transmission Date: 20230418
  Serious: Yes (Hospitalization)
  Sender: FDA-Public Use
  Company Number: US-KARYOPHARM-2023KPT000822

PATIENT

DRUGS (12)
  1. XPOVIO [Suspect]
     Active Substance: SELINEXOR
     Indication: Plasma cell myeloma
     Dosage: 60 MG, 2X/WEEK
     Route: 048
     Dates: start: 20230104, end: 202302
  2. XPOVIO [Suspect]
     Active Substance: SELINEXOR
     Dosage: 20 MG, 2X/WEEK
     Route: 048
     Dates: start: 20230227, end: 20230306
  3. ATENOLOL [Concomitant]
     Active Substance: ATENOLOL
  4. BORTEZOMIB [Concomitant]
     Active Substance: BORTEZOMIB
  5. DARZALEX [Concomitant]
     Active Substance: DARATUMUMAB
  6. ELIQUIS [Concomitant]
     Active Substance: APIXABAN
  7. FAMOTIDINE [Concomitant]
     Active Substance: FAMOTIDINE
  8. LEVOFLOXACIN [Concomitant]
     Active Substance: LEVOFLOXACIN
     Dosage: UNK
  9. MIRTAZAPINE [Concomitant]
     Active Substance: MIRTAZAPINE
  10. NIFEDIPINE [Concomitant]
     Active Substance: NIFEDIPINE
  11. ONDANSETRON [Concomitant]
     Active Substance: ONDANSETRON
  12. XANAX [Concomitant]
     Active Substance: ALPRAZOLAM

REACTIONS (4)
  - Clostridium difficile infection [Unknown]
  - Pseudomonas infection [Unknown]
  - Nausea [Not Recovered/Not Resolved]
  - Vomiting [Not Recovered/Not Resolved]

NARRATIVE: CASE EVENT DATE: 20230201
